FAERS Safety Report 8788867 (Version 1)
Quarter: 2012Q4

REPORT INFORMATION
  Report Type: 
  Country: US (occurrence: US)
  Receive Date: 20120917
  Receipt Date: 20120917
  Transmission Date: 20130627
  Serious: Yes (Other)
  Sender: FDA-Public Use
  Company Number: US-PFIZER INC-2012228405

PATIENT
  Age: 69 Year
  Sex: Male
  Weight: 95.24 kg

DRUGS (5)
  1. CELEBREX [Suspect]
     Indication: PAIN
     Dosage: 400 mg, daily
     Route: 048
     Dates: start: 20120908, end: 20120908
  2. CELEBREX [Suspect]
     Dosage: 200 mg, daily
     Route: 048
     Dates: start: 20120909, end: 20120911
  3. LIPITOR [Concomitant]
     Dosage: 40 mg, daily
  4. SYNTHROID [Concomitant]
     Indication: THYROID DISORDER
     Dosage: 150 ug, daily
  5. ASPIRIN [Concomitant]
     Indication: ARRHYTHMIA
     Dosage: 81 mg, daily

REACTIONS (3)
  - Blood pressure increased [Not Recovered/Not Resolved]
  - Heart rate abnormal [Not Recovered/Not Resolved]
  - Rash [Not Recovered/Not Resolved]
